FAERS Safety Report 15243340 (Version 1)
Quarter: 2018Q4

REPORT INFORMATION
  Report Type: Spontaneous
  Country: US (occurrence: US)
  Receive Date: 20180806
  Receipt Date: 20180806
  Transmission Date: 20190204
  Serious: No
  Sender: FDA-Public Use
  Company Number: US-ALCAMI_CORPORATION-USA-POI0581201700004

PATIENT
  Sex: Male

DRUGS (1)
  1. AZASAN [Suspect]
     Active Substance: AZATHIOPRINE
     Indication: HEART TRANSPLANT REJECTION
     Dosage: HALF OF 100 MG TABLET
     Dates: start: 2003

REACTIONS (1)
  - Sinus congestion [Not Recovered/Not Resolved]

NARRATIVE: CASE EVENT DATE: 2003
